FAERS Safety Report 8954884 (Version 1)
Quarter: 2012Q4

REPORT INFORMATION
  Report Type: 
  Country: IT (occurrence: IT)
  Receive Date: 20121207
  Receipt Date: 20121207
  Transmission Date: 20130627
  Serious: Yes (Hospitalization)
  Sender: FDA-Public Use
  Company Number: IT-ASTRAZENECA-2012SE90383

PATIENT
  Age: 22898 Day
  Sex: Male

DRUGS (4)
  1. SEROQUEL [Suspect]
     Route: 048
     Dates: start: 20120716, end: 20120716
  2. TOLEP [Suspect]
     Route: 048
     Dates: start: 20120716, end: 20120716
  3. ZOLOFT [Suspect]
     Route: 048
     Dates: start: 20120716, end: 20120716
  4. GARDENALE [Suspect]
     Route: 048
     Dates: start: 20120716, end: 20120716

REACTIONS (6)
  - Sopor [Recovered/Resolved]
  - Blood pressure decreased [Recovered/Resolved]
  - Haematocrit decreased [Recovered/Resolved]
  - Lymphocyte count increased [Recovered/Resolved]
  - Urine barbiturates increased [Recovered/Resolved]
  - Haemoglobin decreased [Recovered/Resolved]
